FAERS Safety Report 4527054-6 (Version None)
Quarter: 2004Q4

REPORT INFORMATION
  Report Type: 
  Country: None (occurrence: None)
  Receive Date: 20041129
  Receipt Date: 20040427
  Transmission Date: 20050328
  Serious: Yes (Hospitalization, Other)
  Sender: FDA-Public Use
  Company Number: USA040463704

PATIENT
  Age: 24 Year
  Sex: Female

DRUGS (2)
  1. SYMBYAX [Suspect]
     Dates: start: 20040201
  2. OLANZAPINE [Suspect]
     Dates: end: 20040201

REACTIONS (1)
  - CONVULSION [None]
